FAERS Safety Report 17353625 (Version 4)
Quarter: 2021Q1

REPORT INFORMATION
  Report Type: Spontaneous
  Country: US (occurrence: US)
  Receive Date: 20200131
  Receipt Date: 20210319
  Transmission Date: 20210419
  Serious: Yes (Other)
  Sender: FDA-Public Use
  Company Number: US-GILEAD-2020-0448749

PATIENT
  Age: 46 Year
  Sex: Male
  Weight: 52.15 kg

DRUGS (68)
  1. TIVICAY [Concomitant]
     Active Substance: DOLUTEGRAVIR SODIUM
  2. VITAMIN D3 [Concomitant]
     Active Substance: CHOLECALCIFEROL
  3. AMOXICILLIN. [Concomitant]
     Active Substance: AMOXICILLIN
  4. BUMETANIDE. [Concomitant]
     Active Substance: BUMETANIDE
  5. CEPHALEXIN [CEFALEXIN] [Concomitant]
     Active Substance: CEPHALEXIN
  6. CLOPIDOGREL BISULFATE. [Concomitant]
     Active Substance: CLOPIDOGREL BISULFATE
  7. EMTRICITABINE [Concomitant]
     Active Substance: EMTRICITABINE
  8. ETHACRYNIC [Concomitant]
  9. LEVOFLOXACIN. [Concomitant]
     Active Substance: LEVOFLOXACIN
  10. MOXIFLOXACIN. [Concomitant]
     Active Substance: MOXIFLOXACIN
  11. ASPIRIN [ACETYLSALICYLIC ACID] [Concomitant]
     Active Substance: ASPIRIN
  12. CARVEDILOL. [Concomitant]
     Active Substance: CARVEDILOL
  13. OSELTAMIVIR [Concomitant]
     Active Substance: OSELTAMIVIR
  14. ATRIPLA [Suspect]
     Active Substance: EFAVIRENZ\EMTRICITABINE\TENOFOVIR DISOPROXIL FUMARATE
     Indication: HIV INFECTION
     Dosage: UNK
     Route: 048
     Dates: start: 2010, end: 201005
  15. ALBUTEROL [SALBUTAMOL] [Concomitant]
     Active Substance: ALBUTEROL
  16. CALCIUM [Concomitant]
     Active Substance: CALCIUM
  17. SYMBICORT [Concomitant]
     Active Substance: BUDESONIDE\FORMOTEROL FUMARATE DIHYDRATE
  18. ATORVASTATIN [Concomitant]
     Active Substance: ATORVASTATIN
  19. AZITHROMYCIN ANHYDROUS. [Concomitant]
     Active Substance: AZITHROMYCIN ANHYDROUS
  20. DOXYCYCLINE. [Concomitant]
     Active Substance: DOXYCYCLINE
  21. FUROSEMIDE. [Concomitant]
     Active Substance: FUROSEMIDE
  22. HYDROCODONE/ACETAMINOPHEN [Concomitant]
     Active Substance: ACETAMINOPHEN\HYDROCODONE
  23. METOPROLOL SUCCINATE. [Concomitant]
     Active Substance: METOPROLOL SUCCINATE
  24. RILPIVIRINE [Concomitant]
     Active Substance: RILPIVIRINE
  25. COMBIVIR [Concomitant]
     Active Substance: LAMIVUDINE\ZIDOVUDINE
  26. BUDESONIDE. [Concomitant]
     Active Substance: BUDESONIDE
  27. DIPHENHYDRAMINE. [Concomitant]
     Active Substance: DIPHENHYDRAMINE
  28. ERGOCALCIFEROL. [Concomitant]
     Active Substance: ERGOCALCIFEROL
  29. ONDANSETRON [Concomitant]
     Active Substance: ONDANSETRON
  30. RISEDRONATE [Concomitant]
     Active Substance: RISEDRONATE SODIUM
  31. TAMSULOSIN [Concomitant]
     Active Substance: TAMSULOSIN
  32. KALETRA [Concomitant]
     Active Substance: LOPINAVIR\RITONAVIR
  33. ZERIT [Concomitant]
     Active Substance: STAVUDINE
  34. COMPLERA [Suspect]
     Active Substance: EMTRICITABINE\RILPIVIRINE HYDROCHLORIDE\TENOFOVIR DISOPROXIL FUMARATE
     Indication: HIV INFECTION
     Dosage: UNK
     Route: 048
     Dates: start: 20111011, end: 2012
  35. AMLODIPINE [AMLODIPINE BESILATE] [Concomitant]
     Active Substance: AMLODIPINE BESYLATE
  36. CEFUROXIME. [Concomitant]
     Active Substance: CEFUROXIME
  37. LAMIVUDINE. [Concomitant]
     Active Substance: LAMIVUDINE
  38. LISINOPRIL. [Concomitant]
     Active Substance: LISINOPRIL
  39. MELATONIN [Concomitant]
     Active Substance: MELATONIN
  40. POTASSIUM [Concomitant]
     Active Substance: POTASSIUM
  41. PREDNISONE. [Concomitant]
     Active Substance: PREDNISONE
  42. ATAZANAVIR. [Concomitant]
     Active Substance: ATAZANAVIR
  43. FLUCONAZOLE. [Concomitant]
     Active Substance: FLUCONAZOLE
  44. OMEPRAZOLE. [Concomitant]
     Active Substance: OMEPRAZOLE
  45. PRAVASTATIN. [Concomitant]
     Active Substance: PRAVASTATIN
  46. SENNOSIDES. [Concomitant]
     Active Substance: SENNOSIDES
  47. SULFAMETHOXAZOLE [Concomitant]
     Active Substance: SULFAMETHOXAZOLE
  48. TIOTROPIUM [Concomitant]
     Active Substance: TIOTROPIUM
  49. ATRIPLA [Suspect]
     Active Substance: EFAVIRENZ\EMTRICITABINE\TENOFOVIR DISOPROXIL FUMARATE
     Dosage: UNK
     Route: 048
     Dates: start: 201103, end: 201110
  50. COMPLERA [Suspect]
     Active Substance: EMTRICITABINE\RILPIVIRINE HYDROCHLORIDE\TENOFOVIR DISOPROXIL FUMARATE
     Dosage: UNK
     Route: 048
     Dates: start: 20111011, end: 201612
  51. EMTRIVA [Concomitant]
     Active Substance: EMTRICITABINE
  52. BENZONATATE. [Concomitant]
     Active Substance: BENZONATATE
  53. CEFPODOXIME [Concomitant]
     Active Substance: CEFPODOXIME
  54. LEVOTHYROXINE. [Concomitant]
     Active Substance: LEVOTHYROXINE
  55. MIRTAZAPINE. [Concomitant]
     Active Substance: MIRTAZAPINE
  56. NICOTINE. [Concomitant]
     Active Substance: NICOTINE
  57. NITROGLYCERIN. [Concomitant]
     Active Substance: NITROGLYCERIN
  58. SUSTIVA [Concomitant]
     Active Substance: EFAVIRENZ
  59. DESCOVY [Concomitant]
     Active Substance: EMTRICITABINE\TENOFOVIR ALAFENAMIDE FUMARATE
  60. EPIVIR [Concomitant]
     Active Substance: LAMIVUDINE
  61. VIREAD [Suspect]
     Active Substance: TENOFOVIR DISOPROXIL FUMARATE
     Indication: HIV INFECTION
     Dosage: UNK
     Route: 048
  62. TRUVADA [Suspect]
     Active Substance: EMTRICITABINE\TENOFOVIR DISOPROXIL FUMARATE
     Indication: HIV INFECTION
     Dosage: UNK
     Route: 065
     Dates: start: 2012, end: 2013
  63. TRUVADA [Suspect]
     Active Substance: EMTRICITABINE\TENOFOVIR DISOPROXIL FUMARATE
     Dosage: UNK
     Route: 048
     Dates: start: 20120627
  64. SPIRIVA [Concomitant]
     Active Substance: TIOTROPIUM BROMIDE MONOHYDRATE
  65. ALENDRONATE [Concomitant]
     Active Substance: ALENDRONATE SODIUM
  66. CALCITROL [CALCITRIOL] [Concomitant]
     Active Substance: CALCITRIOL
  67. GUAIFENESIN. [Concomitant]
     Active Substance: GUAIFENESIN
  68. STAVUDINE. [Concomitant]
     Active Substance: STAVUDINE

REACTIONS (10)
  - Chronic kidney disease [Unknown]
  - Economic problem [Not Recovered/Not Resolved]
  - Anhedonia [Not Recovered/Not Resolved]
  - Pain [Not Recovered/Not Resolved]
  - Blood creatinine decreased [Unknown]
  - Bone density decreased [Unknown]
  - Osteoporosis [Not Recovered/Not Resolved]
  - Clavicle fracture [Unknown]
  - Emotional distress [Not Recovered/Not Resolved]
  - Anxiety [Not Recovered/Not Resolved]

NARRATIVE: CASE EVENT DATE: 201206
